FAERS Safety Report 14194683 (Version 1)
Quarter: 2017Q4

REPORT INFORMATION
  Report Type: Spontaneous
  Country: US (occurrence: None)
  Receive Date: 20171103
  Receipt Date: 20171103
  Transmission Date: 20180321
  Serious: No
  Sender: FDA-Public Use
  Company Number: None

PATIENT
  Age: 16 Year
  Sex: Female
  Weight: 81.65 kg

DRUGS (1)
  1. MIRENA [Suspect]
     Active Substance: LEVONORGESTREL
     Dates: start: 20171101, end: 20171102

REACTIONS (4)
  - Uterine pain [None]
  - Vomiting [None]
  - Muscle spasms [None]
  - Dizziness [None]

NARRATIVE: CASE EVENT DATE: 20171101
